FAERS Safety Report 6779101-9 (Version None)
Quarter: 2010Q2

REPORT INFORMATION
  Report Type: 
  Country: None (occurrence: None)
  Receive Date: 20100618
  Receipt Date: 20100614
  Transmission Date: 20101027
  Serious: Yes (Life-Threatening, Hospitalization)
  Sender: FDA-Public Use
  Company Number: US-SANOFI-AVENTIS-2010SA034627

PATIENT
  Sex: Male

DRUGS (1)
  1. PLAVIX [Suspect]
     Route: 048
     Dates: start: 20070101

REACTIONS (5)
  - CARDIAC DISORDER [None]
  - CARDIAC FAILURE [None]
  - HYPERKALAEMIA [None]
  - LUNG DISORDER [None]
  - MYOCARDIAL INFARCTION [None]
